FAERS Safety Report 6253633-4 (Version None)
Quarter: 2009Q3

REPORT INFORMATION
  Report Type: 
  Country: None (occurrence: None)
  Receive Date: 20090701
  Receipt Date: 20090627
  Transmission Date: 20100115
  Serious: Yes (Other)
  Sender: FDA-Public Use
  Company Number: US-PFIZER INC-2009165444

PATIENT
  Sex: Male

DRUGS (2)
  1. LIPITOR [Suspect]
  2. ZOCOR [Suspect]

REACTIONS (5)
  - BLOOD CHOLESTEROL INCREASED [None]
  - BLOOD TRIGLYCERIDES INCREASED [None]
  - CARDIAC OPERATION [None]
  - LIVER FUNCTION TEST ABNORMAL [None]
  - WRONG TECHNIQUE IN DRUG USAGE PROCESS [None]
